FAERS Safety Report 11593752 (Version 1)
Quarter: 2015Q4

REPORT INFORMATION
  Report Type: Spontaneous
  Country: RU (occurrence: RU)
  Receive Date: 20151005
  Receipt Date: 20151005
  Transmission Date: 20160304
  Serious: Yes (Hospitalization, Other)
  Sender: FDA-Public Use
  Company Number: PHHY2015RU117607

PATIENT

DRUGS (1)
  1. AMOXCLAV SANDOZ [Suspect]
     Active Substance: AMOXICILLIN\CLAVULANATE POTASSIUM
     Indication: RHINOPLASTY
     Dosage: 1000 MG, BID
     Route: 048
     Dates: start: 20150819, end: 20150821

REACTIONS (2)
  - Megacolon [Unknown]
  - Pseudomembranous colitis [Unknown]

NARRATIVE: CASE EVENT DATE: 20150821
